FAERS Safety Report 7797954 (Version 2)
Quarter: 2012Q4

REPORT INFORMATION
  Report Type: 
  Country: US (occurrence: US)
  Receive Date: 20110203
  Receipt Date: 20120830
  Transmission Date: 20130627
  Serious: Yes (Death)
  Sender: FDA-Public Use
  Company Number: US-MYLANLABS-2011S1001700

PATIENT
  Age: 50 Year
  Sex: Female
  Weight: 108.86 kg

DRUGS (17)
  1. FENTANYL TRANSDERMAL SYSTEM [Suspect]
     Indication: PAIN
     Dosage: q3days
     Route: 062
     Dates: end: 20090123
  2. DARVOCET-N 100 [Suspect]
  3. SEROQUEL [Suspect]
  4. LASIX [Concomitant]
     Route: 048
  5. METOPROLOL [Concomitant]
     Route: 048
  6. NAPROXEN [Concomitant]
     Route: 048
  7. PRILOSEC [Concomitant]
     Route: 048
  8. ZOCOR [Concomitant]
     Route: 048
  9. AMBIEN [Concomitant]
     Route: 048
  10. ASA [Concomitant]
  11. ATIVAN [Concomitant]
     Route: 048
  12. CYMBALTA [Concomitant]
     Route: 048
  13. DEPAKOTE [Concomitant]
     Route: 048
  14. LANTUS [Concomitant]
     Route: 058
  15. STOOL SOFTENER [Concomitant]
  16. REMERON [Concomitant]
  17. LIDODERM [Concomitant]
     Route: 061

REACTIONS (1)
  - Toxicity to various agents [Fatal]
